FAERS Safety Report 6545970-0 (Version None)
Quarter: 2010Q1

REPORT INFORMATION
  Report Type: 
  Country: None (occurrence: None)
  Receive Date: 20100121
  Receipt Date: 20100121
  Transmission Date: 20100710
  Serious: Yes (Other)
  Sender: FDA-Public Use
  Company Number: None

PATIENT
  Age: 36 Year
  Sex: Female
  Weight: 101.1521 kg

DRUGS (1)
  1. TYLENOL-500 [Suspect]
     Indication: HEADACHE
     Dosage: 1 TABLET ONE A DAY PO
     Route: 048
     Dates: start: 20100117, end: 20100118

REACTIONS (1)
  - ABDOMINAL DISCOMFORT [None]
